FAERS Safety Report 22212553 (Version 8)
Quarter: 2023Q4

REPORT INFORMATION
  Report Type: Report from Study
  Country: US (occurrence: US)
  Receive Date: 20230414
  Receipt Date: 20231103
  Transmission Date: 20240109
  Serious: Yes (Hospitalization, Other)
  Sender: FDA-Public Use
  Company Number: US-PFIZER INC-202300111144

PATIENT
  Age: 80 Year
  Sex: Female
  Weight: 61.24 kg

DRUGS (11)
  1. IBRANCE [Suspect]
     Active Substance: PALBOCICLIB
     Indication: Breast cancer female
     Dosage: ONCE A DAY FOR 21 DAYS ON 7 OFF
     Route: 048
     Dates: start: 202002
  2. IBRANCE [Suspect]
     Active Substance: PALBOCICLIB
     Dosage: 100 MG, 1X/DAY
     Dates: start: 202002
  3. IBRANCE [Suspect]
     Active Substance: PALBOCICLIB
     Dosage: ONCE A DAY FOR 21 DAYS ON 7 OFF
     Route: 048
  4. IBRANCE [Suspect]
     Active Substance: PALBOCICLIB
     Dosage: 100 MG, CYCLIC (100 MG TABLETS DAILY 21 DAYS ON 7 DAYS OFF- ORAL)
     Route: 048
  5. IBRANCE [Suspect]
     Active Substance: PALBOCICLIB
     Dosage: 100 MG, CYCLIC (ONCE DAILY FOR 21 DAYS THEN 7 DAYS OFF)
  6. FASLODEX [Concomitant]
     Active Substance: FULVESTRANT
     Indication: Breast cancer female
     Dosage: ONCE A MONTH 2 GEL SHOT
     Route: 030
     Dates: start: 202002
  7. XGEVA [Concomitant]
     Active Substance: DENOSUMAB
     Indication: Breast cancer female
     Dosage: UNK, MONTHLY
     Route: 058
     Dates: start: 202002
  8. XGEVA [Concomitant]
     Active Substance: DENOSUMAB
     Indication: Neoplasm malignant
     Dosage: 120 MG
  9. XGEVA [Concomitant]
     Active Substance: DENOSUMAB
     Dosage: UNK (120MG/ 1.7ML)
     Route: 058
  10. LEVOTHYROXINE SODIUM [Concomitant]
     Active Substance: LEVOTHYROXINE SODIUM
     Indication: Breast cancer female
     Dosage: 25 UG, DAILY
     Route: 048
     Dates: start: 202103
  11. LEVOTHYROXINE SODIUM [Concomitant]
     Active Substance: LEVOTHYROXINE SODIUM
     Dosage: 112 UG

REACTIONS (21)
  - Arthralgia [Not Recovered/Not Resolved]
  - Pain [Not Recovered/Not Resolved]
  - Myalgia [Not Recovered/Not Resolved]
  - Muscular weakness [Recovered/Resolved]
  - Dental caries [Not Recovered/Not Resolved]
  - Fatigue [Not Recovered/Not Resolved]
  - Asthenia [Not Recovered/Not Resolved]
  - Toothache [Unknown]
  - Osteogenesis imperfecta [Unknown]
  - Dyspnoea [Unknown]
  - Palpitations [Unknown]
  - Thyroid disorder [Unknown]
  - Brain fog [Unknown]
  - Pain in extremity [Unknown]
  - Hyperaesthesia [Unknown]
  - Bradyphrenia [Unknown]
  - Pain in jaw [Not Recovered/Not Resolved]
  - Blood sodium decreased [Not Recovered/Not Resolved]
  - Hyponatraemia [Unknown]
  - Cardiac valve disease [Unknown]
  - Tooth extraction [Unknown]
